FAERS Safety Report 16146164 (Version 1)
Quarter: 2019Q2

REPORT INFORMATION
  Report Type: Spontaneous
  Country: US (occurrence: US)
  Receive Date: 20190402
  Receipt Date: 20190402
  Transmission Date: 20190711
  Serious: No
  Sender: FDA-Public Use
  Company Number: PHEH2019US013632

PATIENT
  Sex: Male

DRUGS (1)
  1. TIMOLOL GFS [Suspect]
     Active Substance: TIMOLOL MALEATE
     Indication: OPEN ANGLE GLAUCOMA
     Dosage: UNK UNK, QD
     Route: 047

REACTIONS (3)
  - Anxiety [Unknown]
  - Incorrect dose administered [Unknown]
  - Product quality issue [Unknown]
